FAERS Safety Report 20384274 (Version 1)
Quarter: 2022Q1

REPORT INFORMATION
  Report Type: Spontaneous
  Country: US (occurrence: None)
  Receive Date: 20220127
  Receipt Date: 20220127
  Transmission Date: 20220423
  Serious: Yes (Hospitalization)
  Sender: FDA-Public Use
  Company Number: None

PATIENT
  Age: 32 Year
  Sex: Female
  Weight: 101 kg

DRUGS (2)
  1. CASIRIVIMAB [Suspect]
     Active Substance: CASIRIVIMAB
     Indication: COVID-19
     Dosage: FREQUENCY : ONCE;?
     Route: 042
     Dates: start: 20211006, end: 20211006
  2. IMDEVIMAB [Suspect]
     Active Substance: IMDEVIMAB
     Indication: COVID-19
     Dosage: FREQUENCY : ONCE;?
     Route: 042
     Dates: start: 20211006, end: 20211006

REACTIONS (3)
  - Caesarean section [None]
  - Infusion related reaction [None]
  - Maternal exposure during pregnancy [None]

NARRATIVE: CASE EVENT DATE: 20211006
